FAERS Safety Report 5239831-7 (Version None)
Quarter: 2007Q1

REPORT INFORMATION
  Report Type: 
  Country: None (occurrence: None)
  Receive Date: 20070214
  Receipt Date: 20070214
  Transmission Date: 20070707
  Serious: Yes (Other)
  Sender: FDA-Public Use
  Company Number: None

PATIENT
  Age: 61 Year
  Sex: Male
  Weight: 113.3993 kg

DRUGS (2)
  1. EFFEXOR [Suspect]
     Indication: DEPRESSION
     Dosage: ONE TO TWO PER DAY PO
     Route: 048
  2. EFFEXOR [Suspect]
     Indication: FIBROMYALGIA
     Dosage: ONE TO TWO PER DAY PO
     Route: 048

REACTIONS (8)
  - AGGRESSION [None]
  - AGITATION [None]
  - DEPRESSION [None]
  - FIBROMYALGIA [None]
  - HALLUCINATION, VISUAL [None]
  - PAIN [None]
  - STRESS [None]
  - SUICIDAL IDEATION [None]
